FAERS Safety Report 23603725 (Version 1)
Quarter: 2024Q1

REPORT INFORMATION
  Report Type: Spontaneous
  Country: TR (occurrence: TR)
  Receive Date: 20240307
  Receipt Date: 20240307
  Transmission Date: 20240410
  Serious: Yes (Hospitalization, Other)
  Sender: FDA-Public Use
  Company Number: TR-002147023-NVSC2022TR302191

PATIENT
  Sex: Female

DRUGS (2)
  1. AZOPT [Suspect]
     Active Substance: BRINZOLAMIDE
     Indication: Glaucoma
     Dosage: 1 DRP, TID (MORNING, AFTERNON AND EVENING TO BOTH EYES)
     Route: 047
  2. AZOPT [Suspect]
     Active Substance: BRINZOLAMIDE
     Dosage: 3 DRP, TID (IT WAS OVER WITHIN 14 DAYS)
     Route: 047

REACTIONS (3)
  - Intraocular pressure increased [Unknown]
  - Overdose [Unknown]
  - Product supply issue [Unknown]
